FAERS Safety Report 5039284-8 (Version None)
Quarter: 2006Q2

REPORT INFORMATION
  Report Type: 
  Country: None (occurrence: None)
  Receive Date: 20060629
  Receipt Date: 20060530
  Transmission Date: 20061013
  Serious: Yes (Hospitalization)
  Sender: FDA-Public Use
  Company Number: US-ROCHE-450221

PATIENT
  Age: 38 Year
  Sex: Female

DRUGS (4)
  1. PEGASYS [Suspect]
     Dosage: ROUTE REPORTED AS INJECTABLE.
     Route: 050
     Dates: start: 20060308
  2. PEGASYS [Suspect]
     Dosage: SHE USED VIALS NOW.
     Route: 050
  3. COPEGUS [Suspect]
     Route: 048
     Dates: start: 20060308
  4. DIURETIC [Concomitant]

REACTIONS (8)
  - ALOPECIA [None]
  - ASTHENIA [None]
  - BLOOD POTASSIUM DECREASED [None]
  - BURNING SENSATION [None]
  - CHEST PAIN [None]
  - DRY SKIN [None]
  - HEADACHE [None]
  - OEDEMA PERIPHERAL [None]
